FAERS Safety Report 10510090 (Version 13)
Quarter: 2017Q2

REPORT INFORMATION
  Report Type: Report from Study
  Country: US (occurrence: US)
  Receive Date: 20141010
  Receipt Date: 20170519
  Transmission Date: 20170829
  Serious: Yes (Death, Hospitalization, Other)
  Sender: FDA-Public Use
  Company Number: US-SA-2014SA138671

PATIENT
  Age: 59 Year
  Sex: Male

DRUGS (3)
  1. FABRAZYME [Suspect]
     Active Substance: AGALSIDASE BETA
     Indication: FABRY^S DISEASE
     Dosage: FREQUENCT: Q2
     Route: 041
     Dates: start: 2015, end: 20170512
  2. FABRAZYME [Suspect]
     Active Substance: AGALSIDASE BETA
     Indication: FABRY^S DISEASE
     Route: 041
     Dates: start: 20030818, end: 201505
  3. MIDODRINE [Concomitant]
     Active Substance: MIDODRINE

REACTIONS (34)
  - Blood viscosity abnormal [Unknown]
  - Dementia [Recovering/Resolving]
  - Pleural effusion [Recovering/Resolving]
  - Death [Fatal]
  - Hypotension [Recovering/Resolving]
  - Tremor [Recovered/Resolved]
  - Anxiety [Unknown]
  - Cardiac failure congestive [Recovering/Resolving]
  - Urosepsis [Recovering/Resolving]
  - Dyspnoea [Recovering/Resolving]
  - Restless legs syndrome [Unknown]
  - Aphasia [Recovered/Resolved]
  - Disorientation [Recovered/Resolved]
  - Hypotension [Recovering/Resolving]
  - Syncope [Unknown]
  - Panic attack [Not Recovered/Not Resolved]
  - Cerebrovascular accident [Recovered/Resolved]
  - Fall [Recovering/Resolving]
  - International normalised ratio decreased [Unknown]
  - Dehydration [Unknown]
  - Tremor [Unknown]
  - Atrial fibrillation [Recovering/Resolving]
  - Dizziness [Recovering/Resolving]
  - Coronary artery disease [Recovering/Resolving]
  - Fatigue [Unknown]
  - Hypotension [Unknown]
  - Mental status changes [Recovering/Resolving]
  - Urinary tract infection [Recovering/Resolving]
  - Pyrexia [Recovering/Resolving]
  - Mitral valve incompetence [Recovering/Resolving]
  - Chromaturia [Unknown]
  - Hypersomnia [Unknown]
  - Infection [Recovering/Resolving]
  - Pyrexia [Unknown]

NARRATIVE: CASE EVENT DATE: 20140928
